FAERS Safety Report 4393877-X (Version None)
Quarter: 2004Q2

REPORT INFORMATION
  Report Type: 
  Country: None (occurrence: None)
  Receive Date: 20040621
  Receipt Date: 20010501
  Transmission Date: 20050107
  Serious: Yes (Hospitalization)
  Sender: FDA-Public Use
  Company Number: KII-2001-0009797

PATIENT
  Age: 54 Year
  Sex: Male

DRUGS (3)
  1. OXYCONTIN [Suspect]
     Indication: CANCER PAIN
     Dosage: 30 MG, Q12H,
  2. PERCOCET [Suspect]
     Indication: CANCER PAIN
  3. DURAGESIC [Suspect]
     Indication: CANCER PAIN
     Dosage: 300 MCG,

REACTIONS (1)
  - INADEQUATE ANALGESIA [None]
